FAERS Safety Report 9639376 (Version 1)
Quarter: 2013Q4

REPORT INFORMATION
  Report Type: Spontaneous
  Country: US (occurrence: US)
  Receive Date: 20131022
  Receipt Date: 20131022
  Transmission Date: 20140711
  Serious: Yes (Death)
  Sender: FDA-Public Use
  Company Number: US-MYLANLABS-2013S1023393

PATIENT
  Sex: Female

DRUGS (2)
  1. FENTANYL TRANSDERMAL SYSTEM [Suspect]
     Indication: BACK PAIN
     Dosage: CHANGED Q 72HR
     Route: 062
     Dates: end: 201310
  2. LORTAB [Concomitant]
     Indication: PAIN
     Dates: end: 201310

REACTIONS (1)
  - Death [Fatal]
